FAERS Safety Report 7770081-6 (Version None)
Quarter: 2011Q3

REPORT INFORMATION
  Report Type: 
  Country: None (occurrence: None)
  Receive Date: 20110922
  Receipt Date: 20110523
  Transmission Date: 20111222
  Serious: No
  Sender: FDA-Public Use
  Company Number: US-ASTRAZENECA-2011SE13268

PATIENT
  Age: 461 Month
  Sex: Female
  Weight: 145.1 kg

DRUGS (6)
  1. GLYBURIDE [Concomitant]
     Indication: DIABETES MELLITUS
  2. SYMBICORT [Concomitant]
     Indication: ASTHMA
     Dosage: 160/4.5 MCG OD
     Route: 055
     Dates: start: 20080101
  3. SEROQUEL XR [Suspect]
     Route: 048
  4. XANAX [Concomitant]
     Indication: ANXIETY
     Dates: start: 20110201
  5. LISINOPRIL AND HYDROCHLOROTHIAZIDE [Concomitant]
     Indication: HYPERTENSION
     Dosage: 20/25 MG DAILY
  6. SEROQUEL XR [Suspect]
     Indication: BIPOLAR DISORDER
     Route: 048
     Dates: start: 20110209, end: 20110209

REACTIONS (5)
  - DRUG DISPENSING ERROR [None]
  - INCORRECT DOSE ADMINISTERED [None]
  - HYPERSOMNIA [None]
  - SEDATION [None]
  - SOMNOLENCE [None]
